FAERS Safety Report 5311581-8 (Version None)
Quarter: 2007Q2

REPORT INFORMATION
  Report Type: 
  Country: None (occurrence: None)
  Receive Date: 20070426
  Receipt Date: 20070426
  Transmission Date: 20071010
  Serious: Yes (Other)
  Sender: FDA-Public Use
  Company Number: None

PATIENT
  Age: 65 Year
  Sex: Male
  Weight: 73.4827 kg

DRUGS (3)
  1. TIMOLOL 0.5% OPTH DROPS [Suspect]
     Indication: INTRAOCULAR PRESSURE INCREASED
     Dosage: 1 DROP, BID, BOTH EYES
     Dates: start: 20060411, end: 20061103
  2. OMEPRAZOLE SA [Concomitant]
  3. SIMVASTATIN [Concomitant]

REACTIONS (3)
  - EYE DISORDER [None]
  - EYE IRRITATION [None]
  - EYE PRURITUS [None]
